FAERS Safety Report 4860884-X (Version None)
Quarter: 2005Q4

REPORT INFORMATION
  Report Type: 
  Country: None (occurrence: None)
  Receive Date: 20051216
  Receipt Date: 20051201
  Transmission Date: 20060501
  Serious: Yes (Death)
  Sender: FDA-Public Use
  Company Number: 12546

PATIENT
  Age: 18 Year
  Sex: Male

DRUGS (4)
  1. MORPHINE [Suspect]
  2. DIAZEPAM [Suspect]
  3. HEROIN [Suspect]
  4. DOXEPIN HCL [Suspect]

REACTIONS (3)
  - CIRCULATORY COLLAPSE [None]
  - DRUG ABUSER [None]
  - FALL [None]
